FAERS Safety Report 9868851 (Version 1)
Quarter: 2014Q1

REPORT INFORMATION
  Report Type: Spontaneous
  Country: US (occurrence: US)
  Receive Date: 20140204
  Receipt Date: 20140204
  Transmission Date: 20141002
  Serious: No
  Sender: FDA-Public Use
  Company Number: US-GILEAD-2014-0093666

PATIENT
  Age: 63 Year
  Sex: Female

DRUGS (15)
  1. LETAIRIS [Suspect]
     Indication: PRODUCT USED FOR UNKNOWN INDICATION
     Dosage: 5 MG, UNK
     Route: 065
     Dates: start: 20131126
  2. LOSARTAN [Concomitant]
  3. AMIODARONE [Concomitant]
  4. KLOR-CON [Concomitant]
  5. LORATADINE [Concomitant]
  6. NEXIUM                             /01479302/ [Concomitant]
  7. NORCO [Concomitant]
  8. ISOSORBIDE MONONITRATE [Concomitant]
  9. XARELTO [Concomitant]
  10. KEPPRA [Concomitant]
  11. COLCHICINE [Concomitant]
  12. METOPROLOL [Concomitant]
  13. SEROQUEL [Concomitant]
  14. CYMBALTA [Concomitant]
  15. CRESTOR [Concomitant]

REACTIONS (1)
  - Oedema peripheral [Not Recovered/Not Resolved]
